FAERS Safety Report 25040982 (Version 1)
Quarter: 2025Q1

REPORT INFORMATION
  Report Type: Spontaneous
  Country: PT (occurrence: PT)
  Receive Date: 20250305
  Receipt Date: 20250305
  Transmission Date: 20250408
  Serious: Yes (Disabling, Other)
  Sender: GILEAD
  Company Number: PT-GILEAD-2025-0705493

PATIENT
  Age: 40 Year
  Sex: Male

DRUGS (1)
  1. BIKTARVY [Suspect]
     Active Substance: BICTEGRAVIR SODIUM\EMTRICITABINE\TENOFOVIR ALAFENAMIDE FUMARATE
     Indication: Product used for unknown indication
     Route: 065

REACTIONS (3)
  - Rash [Unknown]
  - Eye oedema [Unknown]
  - Hypoxia [Unknown]

NARRATIVE: CASE EVENT DATE: 20240826
